FAERS Safety Report 7032112-0 (Version None)
Quarter: 2010Q4

REPORT INFORMATION
  Report Type: 
  Country: None (occurrence: None)
  Receive Date: 20101001
  Receipt Date: 20100927
  Transmission Date: 20110411
  Serious: Yes (Life-Threatening, Hospitalization)
  Sender: FDA-Public Use
  Company Number: CIP10002070

PATIENT
  Age: 69 Year
  Sex: Male

DRUGS (8)
  1. RISEDRONATE SODIUM [Suspect]
     Indication: OSTEOPOROSIS
     Dosage: 17.5 MG ONCE A WEEK, ORAL
     Route: 048
     Dates: start: 20100331, end: 20100818
  2. ELCITONIN (ELCATONIN) [Concomitant]
  3. TICLOPIDINE HCL [Concomitant]
  4. ALLOPURINOL [Concomitant]
  5. PRAVASTATIN [Concomitant]
  6. ASPIRIN [Concomitant]
  7. DIOVAN [Concomitant]
  8. MEXITIL [Concomitant]

REACTIONS (2)
  - BRAIN STEM INFARCTION [None]
  - CEREBRAL INFARCTION [None]
